FAERS Safety Report 9355831 (Version 2)
Quarter: 2013Q3

REPORT INFORMATION
  Report Type: Spontaneous
  Country: IE (occurrence: None)
  Receive Date: 20130614
  Receipt Date: 20130808
  Transmission Date: 20140515
  Serious: Yes (Hospitalization)
  Sender: FDA-Public Use
  Company Number: PI-09501

PATIENT
  Age: 44 Year
  Sex: Male
  Weight: 91 kg

DRUGS (6)
  1. CHLORAPREP (2% CHG/70%/PA) WITH TINT (FD+C YELLOW#6) [Suspect]
     Indication: PREOPERATIVE CARE
     Route: 061
     Dates: start: 20130516
  2. PROPOFOL [Concomitant]
  3. FENTANYL [Concomitant]
  4. SEVOFLURANE [Concomitant]
  5. SURGICAL DRAPES [Concomitant]
  6. CORNEAL PROTECTORS [Concomitant]

REACTIONS (3)
  - Eye burns [None]
  - Chemical injury [None]
  - Post procedural complication [None]
